FAERS Safety Report 23444686 (Version 1)
Quarter: 2024Q1

REPORT INFORMATION
  Report Type: Spontaneous
  Country: US (occurrence: US)
  Receive Date: 20240125
  Receipt Date: 20240125
  Transmission Date: 20240410
  Serious: No
  Sender: FDA-Public Use
  Company Number: US-BRISTOL-MYERS SQUIBB COMPANY-2024-011836

PATIENT
  Age: 72 Year
  Sex: Female

DRUGS (1)
  1. POMALYST [Suspect]
     Active Substance: POMALIDOMIDE
     Indication: Plasma cell myeloma
     Dosage: FREQUENCY-TAKE 1 CAPSULE BY ?MOUTH WHOLE WITH ?WATER, WITH OR ?WITHOUT FOOD AT
     Route: 048

REACTIONS (3)
  - Influenza [Recovering/Resolving]
  - Constipation [Recovering/Resolving]
  - Somnolence [Recovering/Resolving]
